FAERS Safety Report 6025811-0 (Version None)
Quarter: 2008Q4

REPORT INFORMATION
  Report Type: 
  Country: None (occurrence: None)
  Receive Date: 20081224
  Receipt Date: 20081208
  Transmission Date: 20090506
  Serious: Yes (Hospitalization)
  Sender: FDA-Public Use
  Company Number: US025150

PATIENT
  Age: 63 Year
  Sex: Male
  Weight: 99.3 kg

DRUGS (2)
  1. TRISENOX [Suspect]
     Indication: ACUTE MYELOID LEUKAEMIA
     Dosage: 24 MG QD INTRAVENOUS
     Route: 042
     Dates: start: 20081125
  2. CYTARABINE [Suspect]
     Indication: ACUTE MYELOID LEUKAEMIA
     Dosage: 22 MG BID SUBCUTAENOUS
     Route: 058
     Dates: start: 20081125

REACTIONS (4)
  - BLOOD BILIRUBIN INCREASED [None]
  - HYPOTENSION [None]
  - NEUTROPENIC SEPSIS [None]
  - RESPIRATORY DISTRESS [None]
